FAERS Safety Report 7892567-6 (Version None)
Quarter: 2011Q4

REPORT INFORMATION
  Report Type: 
  Country: None (occurrence: None)
  Receive Date: 20111104
  Receipt Date: 20111027
  Transmission Date: 20120403
  Serious: Yes (Other)
  Sender: FDA-Public Use
  Company Number: US-BAYER-2011-097904

PATIENT
  Age: 17 Year
  Sex: Female

DRUGS (2)
  1. MIRENA [Suspect]
     Indication: CONTRACEPTION
     Dosage: 20 ?G/D, UNK
     Route: 015
     Dates: start: 20110421, end: 20110913
  2. MIRENA [Suspect]
     Dosage: UNK

REACTIONS (3)
  - VAGINAL HAEMORRHAGE [None]
  - DEVICE EXPULSION [None]
  - ABDOMINAL PAIN [None]
